FAERS Safety Report 17204460 (Version 1)
Quarter: 2019Q4

REPORT INFORMATION
  Report Type: Spontaneous
  Country: US (occurrence: US)
  Receive Date: 20191226
  Receipt Date: 20191226
  Transmission Date: 20200122
  Serious: No
  Sender: FDA-Public Use
  Company Number: US-009507513-1912USA010766

PATIENT
  Age: 33 Year
  Sex: Female

DRUGS (4)
  1. FOLLISTIM AQ [Suspect]
     Active Substance: FOLLITROPIN
  2. GONADOTROPIN, CHORIONIC [Suspect]
     Active Substance: CHORIOGONADOTROPIN ALFA
     Indication: INFERTILITY FEMALE
     Dosage: 10 000 UNITS, ONCE ^AS DIRECTED^ (UD) (STRENGTH: 10 000 UNITS, MULTIPLE DOSE VIAL (MDV))
     Route: 058
     Dates: start: 20191025
  3. LETROZOLE. [Concomitant]
     Active Substance: LETROZOLE
  4. FOLLISTIM AQ [Suspect]
     Active Substance: FOLLITROPIN
     Indication: INFERTILITY FEMALE
     Dosage: 150 UNITS, DAILY ^AS DIRECTED^ (UD) (STRENGTH: 900IU/1.08 ML)
     Route: 058
     Dates: start: 20191025

REACTIONS (2)
  - Injection site mass [Unknown]
  - Injection site erythema [Not Recovered/Not Resolved]

NARRATIVE: CASE EVENT DATE: 20191216
